FAERS Safety Report 8306007-6 (Version None)
Quarter: 2012Q1

REPORT INFORMATION
  Report Type: 
  Country: None (occurrence: None)
  Receive Date: 20120327
  Receipt Date: 20091022
  Transmission Date: 20120608
  Serious: Yes (Other)
  Sender: FDA-Public Use
  Company Number: PHEH2009US14480

PATIENT
  Sex: Male

DRUGS (2)
  1. GLEEVEC [Suspect]
     Indication: GASTROINTESTINAL STROMAL TUMOUR
     Dosage: 400 MG, QD
     Dates: start: 20030101, end: 20040101
  2. GLEEVEC [Suspect]
     Indication: GASTROINTESTINAL STROMAL TUMOUR
     Dosage: 400 MG, QD
     Dates: start: 20090901

REACTIONS (4)
  - GASTROINTESTINAL STROMAL TUMOUR [None]
  - HEADACHE [None]
  - PAIN [None]
  - NEOPLASM RECURRENCE [None]
